FAERS Safety Report 5254952-0 (Version None)
Quarter: 2007Q1

REPORT INFORMATION
  Report Type: 
  Country: None (occurrence: None)
  Receive Date: 20070305
  Receipt Date: 20070301
  Transmission Date: 20070707
  Serious: Yes (Life-Threatening, Hospitalization)
  Sender: FDA-Public Use
  Company Number: PHBS2007ES03613

PATIENT
  Age: 39 Year
  Sex: Male

DRUGS (5)
  1. NEURONTIN [Suspect]
     Indication: NEUROMYELITIS OPTICA
     Dosage: 600 MG/DAY
     Route: 048
     Dates: start: 20060701, end: 20070116
  2. AZATHIOPRINE SODIUM [Suspect]
     Indication: NEUROMYELITIS OPTICA
     Dosage: 100 MG/DAY
     Route: 048
     Dates: start: 20060803, end: 20070116
  3. ALPRAZOLAM [Concomitant]
  4. TEGRETOL [Suspect]
     Indication: NEUROMYELITIS OPTICA
     Dosage: 800 MG/DAY
     Route: 048
     Dates: start: 20040804, end: 20070116
  5. METAMIZOL [Concomitant]

REACTIONS (19)
  - ASPARTATE AMINOTRANSFERASE INCREASED [None]
  - ASPIRATION BONE MARROW ABNORMAL [None]
  - BILIRUBIN CONJUGATED INCREASED [None]
  - BLOOD ALKALINE PHOSPHATASE INCREASED [None]
  - BLOOD BILIRUBIN INCREASED [None]
  - BLOOD IRON INCREASED [None]
  - BLOOD LACTATE DEHYDROGENASE INCREASED [None]
  - GAMMA-GLUTAMYLTRANSFERASE INCREASED [None]
  - HAEMATOCRIT DECREASED [None]
  - HAEMOGLOBIN DECREASED [None]
  - HAEMOPHILUS INFECTION [None]
  - HAPTOGLOBIN DECREASED [None]
  - MORAXELLA INFECTION [None]
  - PANCYTOPENIA [None]
  - PLATELET COUNT DECREASED [None]
  - RED BLOOD CELL COUNT DECREASED [None]
  - RED BLOOD CELL SEDIMENTATION RATE INCREASED [None]
  - SERUM FERRITIN INCREASED [None]
  - WHITE BLOOD CELL COUNT DECREASED [None]
